FAERS Safety Report 8051329-X (Version None)
Quarter: 2012Q1

REPORT INFORMATION
  Report Type: 
  Country: None (occurrence: None)
  Receive Date: 20120117
  Receipt Date: 20120113
  Transmission Date: 20120608
  Serious: Yes (Hospitalization)
  Sender: FDA-Public Use
  Company Number: US-ROCHE-797339

PATIENT
  Sex: Female
  Weight: 95.17 kg

DRUGS (10)
  1. LEXAPRO [Concomitant]
  2. FISH OIL [Concomitant]
     Dosage: QD
  3. DECADRON [Concomitant]
  4. ZANTAC [Concomitant]
  5. AVASTIN [Suspect]
     Indication: MALIGNANT GLIOMA
     Dosage: ALL PATIENTS IN THIS STUDY WILL BE RECEIVING BEVACIZUMAB ON DAY 1 AND DAY 15 OF EACH CYCLE.
     Route: 065
     Dates: start: 20110808, end: 20110812
  6. PANOBINOSTAT [Suspect]
     Indication: GLIOBLASTOMA
     Route: 065
     Dates: start: 20110808, end: 20110810
  7. ACETAMINOPHEN [Concomitant]
     Dosage: 500-1000 MG PRN
  8. AVASTIN [Suspect]
     Route: 065
  9. DIPHENHYDRAMINE HCL [Concomitant]
     Dosage: 25 MG QHS
  10. KEPPRA [Concomitant]

REACTIONS (3)
  - HEADACHE [None]
  - BRADYCARDIA [None]
  - ALANINE AMINOTRANSFERASE INCREASED [None]
